FAERS Safety Report 14615625 (Version 1)
Quarter: 2018Q1

REPORT INFORMATION
  Report Type: Spontaneous
  Country: DE (occurrence: DE)
  Receive Date: 20180309
  Receipt Date: 20180309
  Transmission Date: 20180509
  Serious: Yes (Other)
  Sender: FDA-Public Use
  Company Number: DE-BRISTOL-MYERS SQUIBB COMPANY-BMS-2018-021555

PATIENT
  Age: 52 Year
  Sex: Male

DRUGS (5)
  1. SPASMEX /00376202/ [Suspect]
     Active Substance: TROSPIUM CHLORIDE
     Indication: PRODUCT USED FOR UNKNOWN INDICATION
     Dosage: UNK
     Route: 065
     Dates: start: 20171101
  2. MIRABEGRON [Suspect]
     Active Substance: MIRABEGRON
     Indication: BLADDER DYSFUNCTION
     Dosage: 50 MG, QD
     Route: 065
     Dates: start: 20171001, end: 20171101
  3. METFORMIN HYDROCHLORIDE. [Suspect]
     Active Substance: METFORMIN HYDROCHLORIDE
     Indication: PRODUCT USED FOR UNKNOWN INDICATION
     Dosage: 2000 MG, QD
     Route: 065
     Dates: end: 20171105
  4. SPASMEX /00376202/ [Suspect]
     Active Substance: TROSPIUM CHLORIDE
     Indication: BLADDER DYSFUNCTION
     Dosage: UNK
     Route: 065
     Dates: start: 20080707, end: 20171001
  5. METFORMIN HYDROCHLORIDE. [Suspect]
     Active Substance: METFORMIN HYDROCHLORIDE
     Indication: PRODUCT USED FOR UNKNOWN INDICATION
     Dosage: 2000 MG, QD
     Route: 065
     Dates: start: 20171116

REACTIONS (4)
  - Impaired quality of life [Unknown]
  - Drug interaction [Unknown]
  - Blood glucose fluctuation [Recovered/Resolved]
  - Drug ineffective [Unknown]

NARRATIVE: CASE EVENT DATE: 20171106
